FAERS Safety Report 6528149-8 (Version None)
Quarter: 2010Q1

REPORT INFORMATION
  Report Type: 
  Country: None (occurrence: None)
  Receive Date: 20100106
  Receipt Date: 20091231
  Transmission Date: 20100710
  Serious: Yes (Hospitalization)
  Sender: FDA-Public Use
  Company Number: US-BAYER-200944099NA

PATIENT
  Sex: Female

DRUGS (1)
  1. MIRENA [Suspect]
     Indication: DRUG USE FOR UNKNOWN INDICATION
     Dosage: CONTINUOUS
     Route: 015
     Dates: end: 20091001

REACTIONS (6)
  - ABDOMINAL DISTENSION [None]
  - DYSPAREUNIA [None]
  - FALLOPIAN TUBE CYST [None]
  - HOT FLUSH [None]
  - PELVIC PAIN [None]
  - WEIGHT INCREASED [None]
